FAERS Safety Report 5517574-X (Version None)
Quarter: 2007Q4

REPORT INFORMATION
  Report Type: 
  Country: None (occurrence: None)
  Receive Date: 20071114
  Receipt Date: 20071106
  Transmission Date: 20080405
  Serious: Yes (Other)
  Sender: FDA-Public Use
  Company Number: FR-PFIZER INC-2007094004

PATIENT
  Sex: Female

DRUGS (1)
  1. RELPAX [Suspect]

REACTIONS (3)
  - DYSPNOEA [None]
  - LUNG DISORDER [None]
  - PAIN IN EXTREMITY [None]
